FAERS Safety Report 7466181-0 (Version None)
Quarter: 2011Q2

REPORT INFORMATION
  Report Type: 
  Country: None (occurrence: None)
  Receive Date: 20110509
  Receipt Date: 20110428
  Transmission Date: 20111010
  Serious: Yes (Hospitalization, Other)
  Sender: FDA-Public Use
  Company Number: PHHY2011TW36602

PATIENT
  Age: 4 Year
  Sex: Male

DRUGS (8)
  1. VINCRISTINE [Concomitant]
     Dosage: 1.5 MG/M2, UNK
  2. ENOXAPARIN [Concomitant]
     Dosage: 1 MG/KG, BID
  3. EPIRUBICIN [Concomitant]
     Dosage: 30 MG/M2, UNK
  4. DEXAMETHASONE [Suspect]
     Dosage: 8 MG/M2, UNK
  5. METHOTREXATE [Concomitant]
     Dosage: 12 MG, UNK
     Route: 037
  6. HYDROCORTISONE [Suspect]
     Dosage: 24 MG, UNK
     Route: 037
  7. ELSPAR [Suspect]
     Dosage: 5000 KU/M2
     Route: 030
  8. CYTARABINE [Concomitant]
     Dosage: 36 MG, UNK
     Route: 037

REACTIONS (13)
  - CEREBRAL INFARCTION [None]
  - ENCEPHALITIS HERPES [None]
  - HEMIPARESIS [None]
  - INTRACRANIAL PRESSURE INCREASED [None]
  - RASH [None]
  - SUPERIOR SAGITTAL SINUS THROMBOSIS [None]
  - GRAND MAL CONVULSION [None]
  - STATUS EPILEPTICUS [None]
  - CEREBRAL DISORDER [None]
  - ELECTROCARDIOGRAM DELTA WAVES ABNORMAL [None]
  - ENCEPHALOMALACIA [None]
  - GAIT DISTURBANCE [None]
  - RED BLOOD CELLS CSF POSITIVE [None]
